FAERS Safety Report 8297844-5 (Version None)
Quarter: 2012Q2

REPORT INFORMATION
  Report Type: 
  Country: None (occurrence: None)
  Receive Date: 20120419
  Receipt Date: 20120411
  Transmission Date: 20120825
  Serious: Yes (Death, Hospitalization, Other)
  Sender: FDA-Public Use
  Company Number: AT-B.I. PHARMACEUTICALS,INC./RIDGEFIELD-2012-EU-02069GD

PATIENT
  Age: 78 Year
  Sex: Male

DRUGS (3)
  1. ALPROSTADIL [Suspect]
     Dosage: 40 MCG
  2. DALTEPARIN SODIUM [Suspect]
     Indication: THROMBOSIS PROPHYLAXIS
     Dosage: 10000 U
  3. DABIGATRAN ETEXILATE [Suspect]
     Indication: THROMBOSIS PROPHYLAXIS
     Dosage: 220 MG

REACTIONS (4)
  - PAIN IN EXTREMITY [None]
  - DRUG INTERACTION [None]
  - BASILAR ARTERY OCCLUSION [None]
  - COMA [None]
